FAERS Safety Report 15208375 (Version 1)
Quarter: 2018Q3

REPORT INFORMATION
  Report Type: Spontaneous
  Country: IT (occurrence: IT)
  Receive Date: 20180727
  Receipt Date: 20180727
  Transmission Date: 20181010
  Serious: Yes (Other)
  Sender: FDA-Public Use
  Company Number: IT-TEVA-2018-IT-931326

PATIENT
  Age: 78 Year
  Sex: Female

DRUGS (4)
  1. CARDIOASPIRIN 100 MG COMPRESSE GASTRORESISTENTI [Concomitant]
     Active Substance: ASPIRIN
     Route: 048
  2. BISOPROLOL HEMIFUMARATE [Suspect]
     Active Substance: BISOPROLOL FUMARATE
     Indication: CARDIAC FAILURE
     Dosage: 1.25 MILLIGRAM DAILY;
     Route: 048
     Dates: start: 20161202, end: 20180626
  3. EUTIROX 50 MICROGRAMMI COMPRESSE [Concomitant]
     Indication: HYPOTHYROIDISM
     Route: 048
  4. EUTIMIL 20 MG COMPRESSE RIVESTITE CON FILM [Concomitant]
     Route: 048

REACTIONS (2)
  - Bundle branch block left [Recovering/Resolving]
  - Atrioventricular block first degree [Recovering/Resolving]

NARRATIVE: CASE EVENT DATE: 20180626
